FAERS Safety Report 9686775 (Version 1)
Quarter: 2013Q4

REPORT INFORMATION
  Report Type: Spontaneous
  Country: BR (occurrence: BR)
  Receive Date: 20131113
  Receipt Date: 20131113
  Transmission Date: 20140711
  Serious: Yes (Hospitalization, Other)
  Sender: FDA-Public Use
  Company Number: BR-PFIZER INC-2013322100

PATIENT
  Age: 52 Year
  Sex: Male
  Weight: 74 kg

DRUGS (5)
  1. ATENOLOL [Suspect]
     Dosage: 50 MG, DAILY
     Route: 048
     Dates: end: 20131025
  2. ATACAND HCT [Suspect]
     Dosage: 8/12.5 MG, DAILY
     Route: 048
  3. BRILINTA [Suspect]
     Indication: STENT MALFUNCTION
     Dosage: 90 MG, DAILY
     Route: 048
     Dates: start: 20131026
  4. SIMVASTATIN [Concomitant]
     Indication: BLOOD CHOLESTEROL INCREASED
     Dosage: UNK
     Route: 065
     Dates: start: 2009
  5. GALVUS [Concomitant]
     Indication: DIABETES MELLITUS
     Dosage: UNK
     Route: 065
     Dates: start: 2010

REACTIONS (5)
  - Venous occlusion [Recovered/Resolved]
  - Chest pain [Unknown]
  - Diabetes mellitus [Unknown]
  - Hypercholesterolaemia [Unknown]
  - Off label use [Not Recovered/Not Resolved]
